FAERS Safety Report 7804825-1 (Version None)
Quarter: 2011Q4

REPORT INFORMATION
  Report Type: 
  Country: None (occurrence: None)
  Receive Date: 20111010
  Receipt Date: 20110930
  Transmission Date: 20120403
  Serious: No
  Sender: FDA-Public Use
  Company Number: US-JNJFOC-20111001950

PATIENT
  Sex: Male
  Weight: 70.76 kg

DRUGS (12)
  1. FENTANYL-100 [Suspect]
     Route: 062
     Dates: start: 20110501, end: 20110501
  2. FENTANYL [Suspect]
     Dosage: 75 UG/HR X 2 PATCHES = 150 UG/HR PATCHES
     Route: 062
     Dates: start: 20110801
  3. FENTANYL [Suspect]
     Route: 062
     Dates: start: 20110501, end: 20110501
  4. FENTANYL-100 [Suspect]
     Indication: MEDICAL DEVICE IMPLANTATION
     Route: 062
     Dates: start: 20110501, end: 20110501
  5. FENTANYL-100 [Suspect]
     Indication: ROAD TRAFFIC ACCIDENT
     Dosage: 75 UG/HR X 2 = 150 UG/HR PATCHES
     Route: 062
     Dates: start: 20110501, end: 20110801
  6. FENTANYL [Suspect]
     Indication: NERVE INJURY
     Dosage: 75 UG/HR X 2 PATCHES = 150 UG/HR PATCHES
     Route: 062
     Dates: start: 20110801
  7. FENTANYL [Suspect]
     Route: 062
     Dates: start: 20110501, end: 20110501
  8. FENTANYL [Suspect]
     Indication: ROAD TRAFFIC ACCIDENT
     Dosage: 75 UG/HR X 2 PATCHES = 150 UG/HR PATCHES
     Route: 062
     Dates: start: 20110801
  9. FENTANYL-100 [Suspect]
     Route: 062
     Dates: start: 20110501, end: 20110501
  10. FENTANYL [Suspect]
     Indication: MEDICAL DEVICE IMPLANTATION
     Route: 062
     Dates: start: 20110501, end: 20110501
  11. FENTANYL-100 [Suspect]
     Dosage: 75 UG/HR X 2 = 150 UG/HR PATCHES
     Route: 062
     Dates: start: 20110501, end: 20110801
  12. FENTANYL-100 [Suspect]
     Indication: NERVE INJURY
     Dosage: 75 UG/HR X 2 = 150 UG/HR PATCHES
     Route: 062
     Dates: start: 20110501, end: 20110801

REACTIONS (7)
  - MUSCLE SPASMS [None]
  - PAIN IN EXTREMITY [None]
  - APPLICATION SITE REACTION [None]
  - PRODUCT QUALITY ISSUE [None]
  - DRUG INEFFECTIVE [None]
  - PAIN [None]
  - WRONG TECHNIQUE IN DRUG USAGE PROCESS [None]
